FAERS Safety Report 15903261 (Version 3)
Quarter: 2019Q2

REPORT INFORMATION
  Report Type: Spontaneous
  Country: US (occurrence: US)
  Receive Date: 20190202
  Receipt Date: 20190410
  Transmission Date: 20190711
  Serious: Yes (Hospitalization)
  Sender: FDA-Public Use
  Company Number: PHEH2019US005048

PATIENT
  Age: 64 Year
  Sex: Male
  Weight: 119.27 kg

DRUGS (1)
  1. AZITHROMYCIN SANDOZ [Suspect]
     Active Substance: AZITHROMYCIN ANHYDROUS
     Indication: UPPER RESPIRATORY TRACT INFECTION
     Dosage: 200 MG, UNK
     Route: 048
     Dates: start: 20190125, end: 20190127

REACTIONS (6)
  - Dysstasia [Unknown]
  - Vomiting [Unknown]
  - Fall [Unknown]
  - Nystagmus [Recovered/Resolved]
  - Vertigo [Recovered/Resolved]
  - Nasopharyngitis [Unknown]

NARRATIVE: CASE EVENT DATE: 20190127
